FAERS Safety Report 14163653 (Version 3)
Quarter: 2018Q1

REPORT INFORMATION
  Report Type: Spontaneous
  Country: IT (occurrence: IT)
  Receive Date: 20171107
  Receipt Date: 20180317
  Transmission Date: 20180508
  Serious: Yes (Hospitalization)
  Sender: FDA-Public Use
  Company Number: IT-ROCHE-2020884

PATIENT
  Age: 64 Year
  Sex: Male

DRUGS (12)
  1. KEPPRA [Concomitant]
     Active Substance: LEVETIRACETAM
     Dosage: 50 X 500 MG FILM-COATED TABLETS
     Route: 048
  2. CREON [Concomitant]
     Active Substance: PANCRELIPASE AMYLASE\PANCRELIPASE LIPASE\PANCRELIPASE PROTEASE
     Route: 048
  3. TRIUMEQ [Concomitant]
     Active Substance: ABACAVIR SULFATE\DOLUTEGRAVIR SODIUM\LAMIVUDINE
     Route: 048
  4. TOLEP [Concomitant]
     Active Substance: OXCARBAZEPINE
     Dosage: 300 MG TABLETS 50 SCORED TABLETS
     Route: 048
  5. PANTORC [Concomitant]
     Active Substance: PANTOPRAZOLE SODIUM
     Dosage: 40 MG GASTRORESISTANT TABLETS 28 TABLETS
     Route: 048
  6. EFEXOR [Concomitant]
     Active Substance: VENLAFAXINE HYDROCHLORIDE
     Dosage: 150 MG EXTENDED RELEASE HARD CAPSULES 28 CAPSULES
     Route: 048
  7. AZAFOR [Concomitant]
     Dosage: 50 MG FILM-COATED TABLETS 50 TABLETS
     Route: 048
  8. LANTUS [Concomitant]
     Active Substance: INSULIN GLARGINE
     Indication: TYPE 2 DIABETES MELLITUS
     Route: 058
  9. HUMALOG [Concomitant]
     Active Substance: INSULIN LISPRO
     Indication: TYPE 2 DIABETES MELLITUS
     Route: 042
  10. FOLINA (ITALY) [Concomitant]
     Dosage: 20 CAPSULES 5 MG
     Route: 048
  11. CLONAZEPAM. [Suspect]
     Active Substance: CLONAZEPAM
     Indication: PRODUCT USED FOR UNKNOWN INDICATION
     Route: 048
  12. SINVACOR [Concomitant]
     Active Substance: SIMVASTATIN
     Dosage: 20 MG FILM-COATED TABLETS 28 TABLETS
     Route: 048

REACTIONS (1)
  - Sopor [Recovered/Resolved]

NARRATIVE: CASE EVENT DATE: 20170802
